FAERS Safety Report 16884519 (Version 2)
Quarter: 2019Q4

REPORT INFORMATION
  Report Type: Spontaneous
  Country: FR (occurrence: FR)
  Receive Date: 20191004
  Receipt Date: 20191128
  Transmission Date: 20200122
  Serious: Yes (Hospitalization)
  Sender: FDA-Public Use
  Company Number: ALC2019FR000944

PATIENT

DRUGS (1)
  1. ATROPINE SULFATE. [Suspect]
     Active Substance: ATROPINE SULFATE
     Indication: ASTIGMATISM
     Dosage: 1 DRP, QD (1 GTT, 1/12ML TOTAL)
     Route: 047
     Dates: start: 20190816, end: 20190816

REACTIONS (1)
  - Erythema [Recovering/Resolving]

NARRATIVE: CASE EVENT DATE: 20190816
